FAERS Safety Report 25493540 (Version 1)
Quarter: 2025Q2

REPORT INFORMATION
  Report Type: Spontaneous
  Country: US (occurrence: US)
  Receive Date: 20250630
  Receipt Date: 20250630
  Transmission Date: 20250717
  Serious: Yes (Hospitalization, Other)
  Sender: Norvium Bioscience
  Company Number: US-Norvium Bioscience LLC-080319

PATIENT
  Age: 43 Year
  Sex: Male

DRUGS (4)
  1. AZITHROMYCIN [Suspect]
     Active Substance: AZITHROMYCIN
     Indication: Legionella infection
     Route: 042
  2. VANCOMYCIN [Concomitant]
     Active Substance: VANCOMYCIN
     Indication: Legionella infection
     Route: 042
  3. PIPERACILLIN AND TAZOBACTAM [Concomitant]
     Active Substance: PIPERACILLIN SODIUM\TAZOBACTAM SODIUM
     Indication: Legionella infection
     Route: 042
  4. ADALIMUMAB [Concomitant]
     Active Substance: ADALIMUMAB
     Indication: Ankylosing spondylitis

REACTIONS (6)
  - Acute respiratory failure [Unknown]
  - Drug ineffective [Unknown]
  - Metabolic encephalopathy [Unknown]
  - Septic shock [Unknown]
  - Rhabdomyolysis [Unknown]
  - Acute kidney injury [Recovered/Resolved]
